FAERS Safety Report 4809354-5 (Version None)
Quarter: 2005Q4

REPORT INFORMATION
  Report Type: 
  Country: None (occurrence: None)
  Receive Date: 20051021
  Receipt Date: 20030102
  Transmission Date: 20060501
  Serious: Yes (Hospitalization)
  Sender: FDA-Public Use
  Company Number: USA030125411

PATIENT
  Age: 71 Year
  Sex: Female
  Weight: 61 kg

DRUGS (8)
  1. ZYPREXA [Suspect]
     Indication: SCHIZOPHRENIA
  2. PROLIXIN [Concomitant]
  3. COGENTIN [Concomitant]
  4. ALBUTEROL [Concomitant]
  5. AZMACORT [Concomitant]
  6. ATROVENT [Concomitant]
  7. SYNTHROID [Concomitant]
  8. ASCORBIC ACID [Concomitant]

REACTIONS (4)
  - ABDOMINAL PAIN UPPER [None]
  - ANAEMIA [None]
  - DIZZINESS [None]
  - REFUSAL OF TREATMENT BY PATIENT [None]
